FAERS Safety Report 14152944 (Version 2)
Quarter: 2017Q4

REPORT INFORMATION
  Report Type: Spontaneous
  Country: US (occurrence: US)
  Receive Date: 20171102
  Receipt Date: 20171116
  Transmission Date: 20180321
  Serious: Yes (Hospitalization, Other)
  Sender: FDA-Public Use
  Company Number: US-009507513-1710USA013133

PATIENT
  Sex: Male

DRUGS (2)
  1. REBETOL [Suspect]
     Active Substance: RIBAVIRIN
     Indication: CHRONIC HEPATITIS C
     Dosage: UNK
     Route: 048
  2. SOFOSBUVIR [Suspect]
     Active Substance: SOFOSBUVIR
     Indication: CHRONIC HEPATITIS C
     Dosage: UNK

REACTIONS (8)
  - Hypotension [Unknown]
  - Shock [Unknown]
  - Acute kidney injury [Unknown]
  - Mental status changes [Recovered/Resolved]
  - Dizziness [Unknown]
  - Nausea [Unknown]
  - Hyperammonaemia [Unknown]
  - Vomiting [Unknown]
